FAERS Safety Report 4768467-7 (Version None)
Quarter: 2005Q3

REPORT INFORMATION
  Report Type: 
  Country: None (occurrence: None)
  Receive Date: 20050914
  Receipt Date: 20050902
  Transmission Date: 20060218
  Serious: Yes (Death)
  Sender: FDA-Public Use
  Company Number: CH-BRISTOL-MYERS SQUIBB COMPANY-13100284

PATIENT
  Age: 88 Year
  Sex: Female

DRUGS (4)
  1. PRAVASTATIN SODIUM [Suspect]
     Indication: DYSLIPIDAEMIA
     Route: 048
     Dates: start: 20040331, end: 20050902
  2. REPAGLINIDE [Concomitant]
  3. TELMISARTAN [Concomitant]
  4. METFORMIN HCL [Concomitant]

REACTIONS (1)
  - CARDIAC FAILURE [None]
